FAERS Safety Report 20297434 (Version 1)
Quarter: 2022Q1

REPORT INFORMATION
  Report Type: Spontaneous
  Country: US (occurrence: None)
  Receive Date: 20220105
  Receipt Date: 20220105
  Transmission Date: 20220424
  Serious: No
  Sender: FDA-Public Use
  Company Number: US-ROCHE-2739425

PATIENT

DRUGS (1)
  1. HEMLIBRA [Suspect]
     Active Substance: EMICIZUMAB-KXWH
     Indication: Product used for unknown indication
     Dosage: DISCONTINUED ITI AND STARTED EMICIZUMAB
     Route: 065
     Dates: start: 20171101

REACTIONS (1)
  - Tongue injury [Unknown]

NARRATIVE: CASE EVENT DATE: 20181101
